FAERS Safety Report 13833081 (Version 1)
Quarter: 2017Q3

REPORT INFORMATION
  Report Type: Spontaneous
  Country: US (occurrence: US)
  Receive Date: 20170803
  Receipt Date: 20170803
  Transmission Date: 20171127
  Serious: Yes (Life-Threatening, Hospitalization, Other)
  Sender: FDA-Public Use
  Company Number: None

PATIENT
  Age: 57 Year
  Sex: Female
  Weight: 58.05 kg

DRUGS (15)
  1. OXYBUTYNIN [Concomitant]
     Active Substance: OXYBUTYNIN
  2. LIDOCAINE PATCHES [Concomitant]
     Active Substance: LIDOCAINE
  3. ZYRTEC [Concomitant]
     Active Substance: CETIRIZINE HYDROCHLORIDE
  4. PROZAC [Concomitant]
     Active Substance: FLUOXETINE HYDROCHLORIDE
  5. GABAPENTIN. [Concomitant]
     Active Substance: GABAPENTIN
  6. RESTASIS [Concomitant]
     Active Substance: CYCLOSPORINE
  7. VITAMIN D [Concomitant]
     Active Substance: CHOLECALCIFEROL
  8. ALLI [Suspect]
     Active Substance: ORLISTAT
     Indication: WEIGHT DECREASED
     Dosage: ?          QUANTITY:1 CAPSULE(S);?
     Route: 048
     Dates: start: 20100510, end: 20160805
  9. NADOLOL. [Concomitant]
     Active Substance: NADOLOL
  10. LIBRAX [Concomitant]
     Active Substance: CHLORDIAZEPOXIDE HYDROCHLORIDE\CLIDINIUM BROMIDE
  11. LANSOPRAZOLE. [Concomitant]
     Active Substance: LANSOPRAZOLE
  12. XANAX [Concomitant]
     Active Substance: ALPRAZOLAM
  13. MULTI VITAMIN [Concomitant]
     Active Substance: VITAMINS
  14. DILAUDID [Concomitant]
     Active Substance: HYDROMORPHONE HYDROCHLORIDE
  15. VALSARTAN. [Concomitant]
     Active Substance: VALSARTAN

REACTIONS (13)
  - Aspartate aminotransferase increased [None]
  - Gallbladder injury [None]
  - Alanine aminotransferase increased [None]
  - Faeces discoloured [None]
  - Abdominal pain upper [None]
  - Blood alkaline phosphatase increased [None]
  - Electrocardiogram QT prolonged [None]
  - Liver disorder [None]
  - Blood bilirubin increased [None]
  - Gamma-glutamyltransferase increased [None]
  - Renal failure [None]
  - Diarrhoea [None]
  - Impaired gastric emptying [None]

NARRATIVE: CASE EVENT DATE: 20161108
